FAERS Safety Report 15864758 (Version 4)
Quarter: 2020Q1

REPORT INFORMATION
  Report Type: Spontaneous
  Country: AU (occurrence: AU)
  Receive Date: 20190124
  Receipt Date: 20200324
  Transmission Date: 20200409
  Serious: Yes (Hospitalization)
  Sender: FDA-Public Use
  Company Number: AU-MYLANLABS-2019M1006260

PATIENT
  Age: 40 Year
  Sex: Male

DRUGS (6)
  1. METOPROLOL. [Concomitant]
     Active Substance: METOPROLOL
     Indication: BLOOD PRESSURE ABNORMAL
     Dosage: 1 DOSAGE FORM, PM
  2. OSTELIN                            /00107901/ [Concomitant]
     Active Substance: ERGOCALCIFEROL
     Indication: PRODUCT USED FOR UNKNOWN INDICATION
     Dosage: 1 DOSAGE FORM, QD
  3. SODIUM VALPROATE [Concomitant]
     Active Substance: VALPROATE SODIUM
     Indication: PRODUCT USED FOR UNKNOWN INDICATION
     Dosage: 1 DOSAGE FORM, BID
  4. CLOZARIL [Suspect]
     Active Substance: CLOZAPINE
     Indication: SCHIZOPHRENIA
     Dosage: 300 MILLIGRAM
     Route: 048
     Dates: start: 20141211
  5. CLOZARIL [Suspect]
     Active Substance: CLOZAPINE
     Dosage: 400 MILLIGRAM
     Route: 048
     Dates: start: 20141211
  6. CLOZARIL [Suspect]
     Active Substance: CLOZAPINE
     Dosage: 300 MILLIGRAM, PM
     Route: 048
     Dates: start: 20190122

REACTIONS (10)
  - White blood cell count increased [Not Recovered/Not Resolved]
  - Mean platelet volume increased [Recovered/Resolved]
  - Haematocrit decreased [Recovered/Resolved]
  - Red cell distribution width increased [Recovered/Resolved]
  - Hospitalisation [Recovered/Resolved]
  - Neutrophil count increased [Recovered/Resolved]
  - Haemoglobin decreased [Recovered/Resolved]
  - Lymphocyte count increased [Not Recovered/Not Resolved]
  - Red blood cell count decreased [Recovered/Resolved]
  - Monocyte count increased [Recovered/Resolved]

NARRATIVE: CASE EVENT DATE: 20181221
